FAERS Safety Report 14349225 (Version 2)
Quarter: 2018Q1

REPORT INFORMATION
  Report Type: Spontaneous
  Country: IE (occurrence: IE)
  Receive Date: 20180104
  Receipt Date: 20180124
  Transmission Date: 20180509
  Serious: Yes (Death, Other)
  Sender: FDA-Public Use
  Company Number: IE-LUPIN PHARMACEUTICALS INC.-2017-07609

PATIENT
  Age: 77 Year
  Sex: Male

DRUGS (10)
  1. ALPRAZOLAM. [Concomitant]
     Active Substance: ALPRAZOLAM
     Indication: ANXIETY
     Dosage: UNK
     Route: 065
  2. OXYCODONE [Suspect]
     Active Substance: OXYCODONE
     Dosage: 15 MG, BID
     Route: 065
     Dates: start: 20160324, end: 20160325
  3. PREGABALIN. [Concomitant]
     Active Substance: PREGABALIN
     Dosage: DOSE INCREASED
     Route: 065
  4. OXYCODONE [Suspect]
     Active Substance: OXYCODONE
     Dosage: 20 MG, BID
     Route: 065
     Dates: start: 20160320
  5. OXYCODONE [Suspect]
     Active Substance: OXYCODONE
     Indication: NEURALGIA
     Dosage: 5 MG, PRN
     Route: 065
     Dates: start: 20160324
  6. OXYCODONE [Suspect]
     Active Substance: OXYCODONE
     Dosage: 5 MG, PRN
     Route: 065
     Dates: start: 20160331
  7. PREGABALIN. [Concomitant]
     Active Substance: PREGABALIN
     Indication: NEURALGIA
     Dosage: UNK
     Route: 065
  8. OXYCODONE [Suspect]
     Active Substance: OXYCODONE
     Indication: NEURALGIA
     Dosage: 40 MG, BID
     Route: 065
     Dates: start: 20160311
  9. OXYCODONE [Suspect]
     Active Substance: OXYCODONE
     Dosage: 50 MG, BID PROLONGED RELEASE
     Route: 065
  10. ARTHROTEC [Concomitant]
     Active Substance: DICLOFENAC SODIUM\MISOPROSTOL
     Indication: NEURALGIA
     Dosage: UNK
     Route: 065
     Dates: start: 20160316

REACTIONS (6)
  - Drug intolerance [Unknown]
  - Myoclonus [Recovered/Resolved]
  - Visual field defect [Unknown]
  - Hallucination [Recovered/Resolved]
  - Toxicity to various agents [Unknown]
  - Abnormal dreams [Unknown]

NARRATIVE: CASE EVENT DATE: 20160311
